FAERS Safety Report 15931847 (Version 1)
Quarter: 2019Q1

REPORT INFORMATION
  Report Type: Spontaneous
  Country: US (occurrence: US)
  Receive Date: 20190116
  Receipt Date: 20190116
  Transmission Date: 20190417
  Serious: Yes (Death, Hospitalization)
  Sender: FDA-Public Use
  Company Number: None

PATIENT
  Age: 36 Year
  Sex: Female
  Weight: 134.4 kg

DRUGS (5)
  1. METHOTREXATE. [Suspect]
     Active Substance: METHOTREXATE
     Dates: end: 20180917
  2. ONCASPAR [Suspect]
     Active Substance: PEGASPARGASE
     Dates: end: 20180824
  3. DEXAMETHASONE. [Suspect]
     Active Substance: DEXAMETHASONE
     Dates: end: 20180828
  4. DAUNORUBICIN [Suspect]
     Active Substance: DAUNORUBICIN
     Dates: end: 20180829
  5. CYTARABINE. [Suspect]
     Active Substance: CYTARABINE
     Dates: end: 20180808

REACTIONS (17)
  - Blood creatine increased [None]
  - Pulse absent [None]
  - Epistaxis [None]
  - Hepatitis [None]
  - Cholestatic liver injury [None]
  - Hyporesponsive to stimuli [None]
  - Thrombocytopenia [None]
  - Dialysis [None]
  - Hepatic steatosis [None]
  - Enterococcal infection [None]
  - Hypotension [None]
  - Cough [None]
  - Choking [None]
  - Mouth haemorrhage [None]
  - Streptococcal sepsis [None]
  - Anuria [None]
  - Alpha haemolytic streptococcal infection [None]

NARRATIVE: CASE EVENT DATE: 20180924
